FAERS Safety Report 5932332-X (Version None)
Quarter: 2008Q4

REPORT INFORMATION
  Report Type: 
  Country: None (occurrence: None)
  Receive Date: 20081028
  Receipt Date: 20081016
  Transmission Date: 20090506
  Serious: Yes (Death, Hospitalization)
  Sender: FDA-Public Use
  Company Number: US-BAYER-200826293GPV

PATIENT
  Age: 75 Year
  Sex: Male
  Weight: 59 kg

DRUGS (9)
  1. CAMPATH [Suspect]
     Indication: CHRONIC LYMPHOCYTIC LEUKAEMIA
     Dosage: TOTAL DAILY DOSE: 30 MG
     Route: 058
     Dates: start: 20080618, end: 20080704
  2. CAMPATH [Suspect]
     Dosage: TOTAL DAILY DOSE: 30 MG
     Route: 058
     Dates: start: 20080704, end: 20080908
  3. ACETAMINOPHEN [Concomitant]
     Dates: start: 20080908
  4. TRAMADOL HCL [Concomitant]
     Dates: start: 20080908
  5. METAMIZOL [Concomitant]
     Dates: start: 20080908
  6. FUROSEMIDE [Concomitant]
     Dates: start: 20080908
  7. BENSEDIN [Concomitant]
     Dates: start: 20080908
  8. METOCLOPRAMIDE [Concomitant]
     Dates: start: 20080914
  9. RANITIDINE [Concomitant]
     Dates: start: 20080914

REACTIONS (4)
  - ABSCESS JAW [None]
  - ACUTE RESPIRATORY DISTRESS SYNDROME [None]
  - BRONCHOPNEUMONIA [None]
  - HEPATORENAL SYNDROME [None]
